FAERS Safety Report 18483366 (Version 2)
Quarter: 2020Q4

REPORT INFORMATION
  Report Type: Spontaneous
  Country: CA (occurrence: CA)
  Receive Date: 20201110
  Receipt Date: 20201226
  Transmission Date: 20210114
  Serious: Yes (Other)
  Sender: FDA-Public Use
  Company Number: CA-CELLTRION INC.-2020CA030336

PATIENT

DRUGS (2)
  1. INFLECTRA [Suspect]
     Active Substance: INFLIXIMAB-DYYB
     Indication: ANKYLOSING SPONDYLITIS
     Dosage: 200 MG, EVERY 8 WEEKS
     Route: 042
     Dates: start: 20201102
  2. FLURBIPROFEN. [Concomitant]
     Active Substance: FLURBIPROFEN
     Dosage: UNK
     Route: 065

REACTIONS (2)
  - Off label use [Unknown]
  - Weight increased [Unknown]
